FAERS Safety Report 20581376 (Version 1)
Quarter: 2022Q1

REPORT INFORMATION
  Report Type: Spontaneous
  Country: FR (occurrence: FR)
  Receive Date: 20220311
  Receipt Date: 20220311
  Transmission Date: 20220424
  Serious: Yes (Other)
  Sender: FDA-Public Use
  Company Number: None

PATIENT
  Age: 39 Year
  Sex: Male

DRUGS (2)
  1. DIAZEPAM [Suspect]
     Active Substance: DIAZEPAM
     Route: 065
  2. CANNABIS SATIVA SUBSP. INDICA TOP [Suspect]
     Active Substance: CANNABIS SATIVA SUBSP. INDICA TOP
     Route: 065

REACTIONS (4)
  - Depressed level of consciousness [Recovered/Resolved]
  - Poisoning [Recovered/Resolved]
  - Pneumonia aspiration [Recovering/Resolving]
  - Mydriasis [Recovered/Resolved]

NARRATIVE: CASE EVENT DATE: 20220126
